FAERS Safety Report 23560531 (Version 2)
Quarter: 2024Q1

REPORT INFORMATION
  Report Type: Spontaneous
  Country: CZ (occurrence: CZ)
  Receive Date: 20240223
  Receipt Date: 20240314
  Transmission Date: 20240410
  Serious: Yes (Life-Threatening, Other)
  Sender: FDA-Public Use
  Company Number: CZ-GLAXOSMITHKLINE-CZCH2024EME000604

PATIENT
  Age: 77 Year
  Sex: Female

DRUGS (13)
  1. DICLOFENAC SODIUM [Suspect]
     Active Substance: DICLOFENAC\DICLOFENAC SODIUM
     Indication: Osteoarthritis
     Dosage: UNK
     Route: 065
  2. METHOTREXATE [Suspect]
     Active Substance: METHOTREXATE
     Indication: Rheumatoid arthritis
     Dosage: 10 MG, QW
     Route: 065
     Dates: start: 202007, end: 202011
  3. METHOTREXATE [Suspect]
     Active Substance: METHOTREXATE
     Indication: Polymyalgia rheumatica
     Dosage: 7.5 MG, 10 MG, PER WEEK
     Route: 065
     Dates: start: 202011, end: 202102
  4. METHOTREXATE [Suspect]
     Active Substance: METHOTREXATE
     Dosage: 7.500MG
     Route: 065
     Dates: end: 202102
  5. METHOTREXATE [Suspect]
     Active Substance: METHOTREXATE
     Dosage: 10.000 MG
     Route: 065
     Dates: start: 2020
  6. UPADACITINIB [Suspect]
     Active Substance: UPADACITINIB
     Indication: Rheumatoid arthritis
     Dosage: UNK
     Route: 065
     Dates: start: 202111
  7. ALLOPURINOL [Concomitant]
     Active Substance: ALLOPURINOL
     Indication: Rheumatoid arthritis
     Dosage: 300 MG, QD
     Route: 065
  8. METHYLPREDNISOLONE [Concomitant]
     Active Substance: METHYLPREDNISOLONE
     Indication: Polymyalgia rheumatica
     Dosage: 8 MG, QD
     Route: 065
     Dates: start: 202007, end: 20210308
  9. HYDROXYCHLOROQUINE [Concomitant]
     Active Substance: HYDROXYCHLOROQUINE
     Indication: Polymyalgia rheumatica
     Dosage: 400 MG, QD
     Route: 065
     Dates: start: 202011
  10. ADALIMUMAB [Concomitant]
     Active Substance: ADALIMUMAB\ISOPROPYL ALCOHOL
     Indication: Rheumatoid arthritis
     Dosage: UNK
     Route: 065
     Dates: start: 202105, end: 202111
  11. METFORMIN [Concomitant]
     Active Substance: METFORMIN HYDROCHLORIDE
     Indication: Type 2 diabetes mellitus
     Dosage: TRIPLE COMBINATION OF METFORMIN, A SULFONYLUREA DERIVATIVE, AND A GLIPTIN
     Route: 065
     Dates: start: 2016, end: 202106
  12. METFORMIN [Concomitant]
     Active Substance: METFORMIN HYDROCHLORIDE
     Dosage: DULAGLUTIDE, IN COMBINATION WITH METFORMIN
     Route: 065
     Dates: start: 202106
  13. DULAGLUTIDE [Concomitant]
     Active Substance: DULAGLUTIDE
     Indication: Type 2 diabetes mellitus
     Dosage: DULAGLUTIDE, IN COMBINATION WITH METFORMIN
     Route: 065
     Dates: start: 202106

REACTIONS (8)
  - Gamma-glutamyltransferase increased [Recovered/Resolved]
  - Diabetes mellitus [Unknown]
  - Liver function test abnormal [Recovered/Resolved]
  - Condition aggravated [Recovered/Resolved]
  - Transaminases increased [Recovered/Resolved]
  - Alopecia [Unknown]
  - Liver function test increased [Unknown]
  - Product use in unapproved indication [Unknown]
